FAERS Safety Report 4475087-0 (Version None)
Quarter: 2004Q4

REPORT INFORMATION
  Report Type: 
  Country: None (occurrence: None)
  Receive Date: 20041015
  Receipt Date: 20041006
  Transmission Date: 20050328
  Serious: Yes (Hospitalization)
  Sender: FDA-Public Use
  Company Number: NSADSS2002042412

PATIENT
  Age: 48 Year
  Sex: Female

DRUGS (9)
  1. REMICADE [Suspect]
     Route: 041
  2. REMICADE [Suspect]
     Route: 041
  3. REMICADE [Suspect]
     Indication: DERMATOMYOSITIS
     Route: 041
  4. METHOTREXATE [Concomitant]
     Indication: RHEUMATOID ARTHRITIS
  5. CYCLOSPORINE [Concomitant]
  6. PREDNISOLONE [Concomitant]
  7. TACROLIMUS [Concomitant]
  8. AZATHIOPRINE [Concomitant]
  9. CYCLOPHOSPHAMIDE [Concomitant]

REACTIONS (7)
  - BLOOD CULTURE POSITIVE [None]
  - DRUG INEFFECTIVE [None]
  - PNEUMONIA STAPHYLOCOCCAL [None]
  - PSEUDOMONAS INFECTION [None]
  - SCAB [None]
  - SKIN ULCER [None]
  - STAPHYLOCOCCAL INFECTION [None]
